FAERS Safety Report 9271353 (Version 1)
Quarter: 2013Q2

REPORT INFORMATION
  Report Type: Spontaneous
  Country: CA (occurrence: CA)
  Receive Date: 20130506
  Receipt Date: 20130506
  Transmission Date: 20140414
  Serious: Yes (Hospitalization)
  Sender: FDA-Public Use
  Company Number: CA-AMGEN-CANSP2013030220

PATIENT
  Age: 56 Year
  Sex: Male

DRUGS (2)
  1. ARANESP [Suspect]
     Indication: RENAL FAILURE CHRONIC
     Dosage: 150 MUG, QWK
     Dates: start: 20130101
  2. CHEMOTHERAPEUTICS [Concomitant]

REACTIONS (2)
  - Gastric haemorrhage [Unknown]
  - Confusional state [Unknown]
